FAERS Safety Report 8223701-6 (Version None)
Quarter: 2012Q1

REPORT INFORMATION
  Report Type: 
  Country: None (occurrence: None)
  Receive Date: 20120316
  Receipt Date: 20120307
  Transmission Date: 20120608
  Serious: Yes (Life-Threatening)
  Sender: FDA-Public Use
  Company Number: TCI2012A00797

PATIENT
  Age: 83 Year
  Sex: Male

DRUGS (4)
  1. ACTOS [Suspect]
     Indication: DIABETES MELLITUS
     Dosage: 15 MG (15 MG,1 IN 1 D) PER ORAL
     Route: 048
     Dates: start: 20100511, end: 20111222
  2. AMLODIPINE BESYLATE [Concomitant]
  3. OLMESARTAN MEDOXOMIL [Concomitant]
  4. AMARYL [Concomitant]

REACTIONS (1)
  - BLADDER CANCER [None]
